FAERS Safety Report 7264362-2 (Version None)
Quarter: 2011Q1

REPORT INFORMATION
  Report Type: 
  Country: None (occurrence: None)
  Receive Date: 20110120
  Receipt Date: 20110106
  Transmission Date: 20110831
  Serious: Yes (Hospitalization)
  Sender: FDA-Public Use
  Company Number: 2011PL000001

PATIENT
  Age: 37 Year
  Sex: Female

DRUGS (1)
  1. MERCAPTOPURINE [Suspect]
     Indication: HYPERTHYROIDISM
     Dosage: 100 MG;TID;

REACTIONS (29)
  - PAIN IN EXTREMITY [None]
  - HAEMATOCRIT DECREASED [None]
  - PLATELET COUNT DECREASED [None]
  - OVERDOSE [None]
  - TACHYCARDIA [None]
  - HYPERTENSION [None]
  - RASH ERYTHEMATOUS [None]
  - PROTHROMBIN TIME PROLONGED [None]
  - DRUG DISPENSING ERROR [None]
  - FATIGUE [None]
  - NIGHT SWEATS [None]
  - ALANINE AMINOTRANSFERASE INCREASED [None]
  - DECREASED APPETITE [None]
  - ABDOMINAL PAIN [None]
  - CHEST PAIN [None]
  - BACK PAIN [None]
  - EYELID PTOSIS [None]
  - BLOOD ALKALINE PHOSPHATASE INCREASED [None]
  - HEPATOTOXICITY [None]
  - ACCIDENTAL EXPOSURE [None]
  - VOMITING [None]
  - NECK PAIN [None]
  - ASPARTATE AMINOTRANSFERASE INCREASED [None]
  - HEADACHE [None]
  - ALOPECIA [None]
  - PAIN [None]
  - NAUSEA [None]
  - ANXIETY [None]
  - HAEMOGLOBIN DECREASED [None]
